FAERS Safety Report 6608783-7 (Version None)
Quarter: 2010Q1

REPORT INFORMATION
  Report Type: 
  Country: None (occurrence: None)
  Receive Date: 20100301
  Receipt Date: 20100215
  Transmission Date: 20100710
  Serious: Yes (Death)
  Sender: FDA-Public Use
  Company Number: US-JNJFOC-20100209334

PATIENT
  Age: 22 Month
  Sex: Male
  Weight: 14.06 kg

DRUGS (6)
  1. CHILDREN'S TYLENOL [Suspect]
     Route: 065
  2. CHILDREN'S TYLENOL [Suspect]
     Indication: VIRAL INFECTION
     Route: 065
  3. FENTANYL-100 [Concomitant]
     Route: 065
  4. CHLORPHENIRAMINE MALEATE [Concomitant]
  5. MIDAZOLAM HCL [Concomitant]
  6. PAPAVERINE [Concomitant]

REACTIONS (1)
  - HEPATIC NECROSIS [None]
